FAERS Safety Report 6814417-9 (Version None)
Quarter: 2010Q2

REPORT INFORMATION
  Report Type: 
  Country: None (occurrence: None)
  Receive Date: 20100629
  Receipt Date: 20100615
  Transmission Date: 20101027
  Serious: Yes (Hospitalization)
  Sender: FDA-Public Use
  Company Number: A-NJ2010-35483

PATIENT
  Age: 73 Year
  Sex: Female
  Weight: 62.6 kg

DRUGS (7)
  1. TRACLEER [Suspect]
     Indication: PULMONARY ARTERIAL HYPERTENSION
     Dosage: 125 MG, BID, ORAL
     Route: 048
     Dates: start: 20080501, end: 20100310
  2. REVATIO [Concomitant]
  3. ADVAIR DISKUS 100/50 [Concomitant]
  4. CELEBREX [Concomitant]
  5. SPIRIVA [Concomitant]
  6. VITAMIN B12 [Concomitant]
  7. ALBUTEROL [Concomitant]

REACTIONS (5)
  - ABDOMINAL PAIN UPPER [None]
  - ALANINE AMINOTRANSFERASE INCREASED [None]
  - ASPARTATE AMINOTRANSFERASE INCREASED [None]
  - BLOOD ALKALINE PHOSPHATASE INCREASED [None]
  - BLOOD BILIRUBIN INCREASED [None]
